FAERS Safety Report 8795761 (Version 1)
Quarter: 2012Q4

REPORT INFORMATION
  Report Type: 
  Country: US (occurrence: US)
  Receive Date: 20120920
  Receipt Date: 20120920
  Transmission Date: 20130627
  Serious: Yes (Death, Other)
  Sender: FDA-Public Use
  Company Number: US-ROXANE LABORATORIES, INC.-2012-RO-01866RO

PATIENT
  Age: 61 Year
  Sex: Female

DRUGS (16)
  1. METHOTREXATE [Suspect]
     Indication: DIFFUSE LARGE B-CELL LYMPHOMA
  2. CYCLOPHOSPHAMIDE TABLETS USP [Suspect]
     Indication: DIFFUSE LARGE B-CELL LYMPHOMA
  3. DOXORUBICIN [Suspect]
     Indication: DIFFUSE LARGE B-CELL LYMPHOMA
  4. ETOPOSIDE [Suspect]
     Indication: DIFFUSE LARGE B-CELL LYMPHOMA
  5. ETOPOSIDE [Suspect]
     Indication: BONE MARROW CONDITIONING REGIMEN
  6. PREDNISOLONE [Suspect]
     Indication: DIFFUSE LARGE B-CELL LYMPHOMA
  7. VINCRISTINE [Suspect]
     Indication: DIFFUSE LARGE B-CELL LYMPHOMA
  8. BLEOMYCIN [Suspect]
     Indication: DIFFUSE LARGE B-CELL LYMPHOMA
  9. CARMUSTINE [Suspect]
     Indication: BONE MARROW CONDITIONING REGIMEN
  10. CYTARABINE [Suspect]
     Indication: BONE MARROW CONDITIONING REGIMEN
  11. MELPHALAN [Suspect]
     Indication: BONE MARROW CONDITIONING REGIMEN
  12. CEFEPIME [Suspect]
     Indication: FEBRILE NEUTROPENIA
     Route: 042
  13. VANCOMYCIN [Suspect]
     Indication: FEBRILE NEUTROPENIA
     Route: 042
  14. SORAFENIB [Suspect]
     Indication: DIFFUSE LARGE B-CELL LYMPHOMA RECURRENT
  15. EVEROLIMUS [Suspect]
     Indication: DIFFUSE LARGE B-CELL LYMPHOMA RECURRENT
  16. VALACYCLOVIR [Concomitant]
     Indication: ORAL HERPES
     Dosage: 2 g
     Route: 048

REACTIONS (10)
  - B-cell lymphoma recurrent [Fatal]
  - Dermatitis bullous [Recovered/Resolved]
  - Palmar-plantar erythrodysaesthesia syndrome [Recovered/Resolved]
  - Pyrexia [Unknown]
  - Mucosal inflammation [Unknown]
  - Nausea [Unknown]
  - Oral herpes [Unknown]
  - Renal failure acute [Unknown]
  - Renal tubular necrosis [Unknown]
  - Febrile neutropenia [Unknown]
